FAERS Safety Report 8587195-3 (Version None)
Quarter: 2012Q3

REPORT INFORMATION
  Report Type: 
  Country: None (occurrence: None)
  Receive Date: 20120810
  Receipt Date: 20111007
  Transmission Date: 20120928
  Serious: Yes (Other)
  Sender: FDA-Public Use
  Company Number: US-ASTRAZENECA-2010SE59381

PATIENT
  Age: 49 Year
  Sex: Female

DRUGS (3)
  1. ARIMIDEX [Suspect]
     Route: 048
  2. ZOMETA [Concomitant]
  3. NEXIUM [Concomitant]

REACTIONS (8)
  - METASTASES TO CENTRAL NERVOUS SYSTEM [None]
  - MUSCLE SPASMS [None]
  - DYSKINESIA [None]
  - ARTHRALGIA [None]
  - BREAST CANCER METASTATIC [None]
  - METASTATIC PAIN [None]
  - METASTASES TO BONE [None]
  - MUSCLE FATIGUE [None]
